FAERS Safety Report 6805117-X (Version None)
Quarter: 2010Q2

REPORT INFORMATION
  Report Type: 
  Country: None (occurrence: None)
  Receive Date: 20100628
  Receipt Date: 20070828
  Transmission Date: 20101027
  Serious: No
  Sender: FDA-Public Use
  Company Number: US-PFIZER INC-2007070698

PATIENT
  Sex: Male
  Weight: 70.454 kg

DRUGS (3)
  1. GEODON [Suspect]
     Indication: BIPOLAR I DISORDER
     Dates: start: 20070601
  2. COGENTIN [Suspect]
     Indication: AKATHISIA
     Dates: start: 20070601, end: 20070819
  3. LAMICTAL [Concomitant]

REACTIONS (10)
  - AKATHISIA [None]
  - DISSOCIATION [None]
  - DRUG INEFFECTIVE [None]
  - FEELING ABNORMAL [None]
  - MYDRIASIS [None]
  - PANIC REACTION [None]
  - PARAESTHESIA [None]
  - SOMNOLENCE [None]
  - VISION BLURRED [None]
  - VISUAL IMPAIRMENT [None]
